FAERS Safety Report 8622741-2 (Version None)
Quarter: 2012Q3

REPORT INFORMATION
  Report Type: 
  Country: None (occurrence: None)
  Receive Date: 20120810
  Receipt Date: 20120730
  Transmission Date: 20120928
  Serious: Yes (Hospitalization, Other)
  Sender: FDA-Public Use
  Company Number: 2012P1052046

PATIENT
  Age: 4 Year
  Sex: Male

DRUGS (1)
  1. ALBENDAZOLE (NO PREF. NAME) [Suspect]
     Indication: INFECTION PARASITIC
     Dosage: 200 MG; PO
     Route: 048

REACTIONS (5)
  - PRURITUS [None]
  - ERYTHEMA [None]
  - DRUG ERUPTION [None]
  - SKIN EXFOLIATION [None]
  - EPIDERMOLYSIS BULLOSA [None]
